FAERS Safety Report 23224067 (Version 2)
Quarter: 2024Q1

REPORT INFORMATION
  Report Type: Spontaneous
  Country: AU (occurrence: AU)
  Receive Date: 20231124
  Receipt Date: 20240117
  Transmission Date: 20240409
  Serious: Yes (Hospitalization)
  Sender: FDA-Public Use
  Company Number: AU-NOVOPROD-1141903

PATIENT
  Age: 82 Year
  Sex: Female

DRUGS (1)
  1. INSULIN ASPART\INSULIN DEGLUDEC [Suspect]
     Active Substance: INSULIN ASPART\INSULIN DEGLUDEC
     Indication: Type 1 diabetes mellitus
     Dosage: UNK

REACTIONS (3)
  - Diabetic ketoacidosis [Not Recovered/Not Resolved]
  - Device issue [Unknown]
  - Device failure [Unknown]
